FAERS Safety Report 9796332 (Version 3)
Quarter: 2014Q1

REPORT INFORMATION
  Report Type: Spontaneous
  Country: IL (occurrence: IL)
  Receive Date: 20140103
  Receipt Date: 20140123
  Transmission Date: 20141002
  Serious: Yes (Life-Threatening, Hospitalization)
  Sender: FDA-Public Use
  Company Number: IL-CELGENEUS-082-21880-13122022

PATIENT
  Age: 64 Year
  Sex: Male
  Weight: 78 kg

DRUGS (11)
  1. REVLIMID [Suspect]
     Indication: PLASMA CELL MYELOMA
     Dosage: 5 MILLIGRAM
     Route: 048
     Dates: start: 20120513, end: 20120814
  2. ELOTUZUMAB [Suspect]
     Indication: PLASMA CELL MYELOMA
     Dosage: 820 MILLIGRAM
     Route: 041
     Dates: start: 20120513, end: 20120805
  3. DEXAMETHASONE [Suspect]
     Indication: PLASMA CELL MYELOMA
     Dosage: 40 MILLIGRAM
     Route: 048
     Dates: start: 20120512, end: 20120804
  4. DEXAMETHASONE [Suspect]
     Dosage: 8 MILLIGRAM
     Route: 041
     Dates: start: 20120513, end: 20120805
  5. ACETYLSALICYLIC ACID [Concomitant]
     Indication: PRODUCT USED FOR UNKNOWN INDICATION
     Route: 065
     Dates: start: 20120513
  6. NEUPOGEN [Concomitant]
     Indication: NEUTROPENIA
     Route: 058
     Dates: start: 20120718, end: 20120720
  7. NEUPOGEN [Concomitant]
     Route: 058
     Dates: start: 20120725, end: 20120726
  8. NEUPOGEN [Concomitant]
     Route: 058
     Dates: start: 20120802, end: 20120803
  9. NEUPOGEN [Concomitant]
     Route: 058
     Dates: start: 20120808, end: 20120809
  10. NEUPOGEN [Concomitant]
     Dosage: -480 MG
     Route: 058
     Dates: start: 20120901, end: 20120923
  11. NEUPOGEN [Concomitant]
     Route: 065
     Dates: start: 20121106, end: 20121108

REACTIONS (2)
  - Malignant neoplasm progression [Recovered/Resolved]
  - Bone marrow failure [Recovered/Resolved]
